FAERS Safety Report 21622363 (Version 1)
Quarter: 2022Q4

REPORT INFORMATION
  Report Type: Spontaneous
  Country: US (occurrence: None)
  Receive Date: 20221120
  Receipt Date: 20221120
  Transmission Date: 20230112
  Serious: No
  Sender: FDA-Public Use
  Company Number: None

PATIENT
  Age: 75 Year
  Sex: Female
  Weight: 72 kg

DRUGS (8)
  1. DOXYCYCLINE HYCLATE [Suspect]
     Active Substance: DOXYCYCLINE HYCLATE
     Indication: Sinusitis
     Dosage: FREQUENCY : TWICE A DAY;?
     Route: 048
     Dates: start: 20221118, end: 20221120
  2. VITAMIN C [Concomitant]
     Active Substance: ASCORBIC ACID
  3. VITAMIN D [Concomitant]
     Active Substance: VITAMIN D NOS
  4. VITAMIN B12 [Concomitant]
     Active Substance: CYANOCOBALAMIN
  5. magnesium complex [Concomitant]
  6. flaxseed oil [Concomitant]
  7. WILLOW BARK [Concomitant]
  8. DEVICE [Concomitant]
     Active Substance: DEVICE

REACTIONS (4)
  - Visual impairment [None]
  - Syncope [None]
  - Head injury [None]
  - Nausea [None]

NARRATIVE: CASE EVENT DATE: 20221120
